FAERS Safety Report 11460441 (Version 1)
Quarter: 2015Q3

REPORT INFORMATION
  Report Type: Report from Study
  Country: US (occurrence: US)
  Receive Date: 20150904
  Receipt Date: 20150904
  Transmission Date: 20151125
  Serious: Yes (Death, Hospitalization, Other)
  Sender: FDA-Public Use
  Company Number: US-ABBVIE-15P-163-1456760-00

PATIENT
  Age: 77 Year
  Sex: Male
  Weight: 84.44 kg

DRUGS (1)
  1. HUMIRA [Suspect]
     Active Substance: ADALIMUMAB
     Indication: RHEUMATOID ARTHRITIS
     Route: 058

REACTIONS (4)
  - Interstitial lung disease [Fatal]
  - Failure to thrive [Fatal]
  - Fall [Unknown]
  - Dementia [Fatal]

NARRATIVE: CASE EVENT DATE: 201411
